FAERS Safety Report 20954919 (Version 1)
Quarter: 2022Q2

REPORT INFORMATION
  Report Type: Spontaneous
  Country: US (occurrence: None)
  Receive Date: 20220614
  Receipt Date: 20220614
  Transmission Date: 20220721
  Serious: No
  Sender: FDA-Public Use
  Company Number: US-MDD US Operations-MDD202107-001395

PATIENT
  Age: 70 Year
  Sex: Female
  Weight: 136.07 kg

DRUGS (11)
  1. APOKYN [Suspect]
     Active Substance: APOMORPHINE HYDROCHLORIDE
     Indication: Parkinson^s disease
     Route: 058
     Dates: start: 20210518, end: 2021
  2. APOKYN [Suspect]
     Active Substance: APOMORPHINE HYDROCHLORIDE
     Route: 058
     Dates: end: 2021
  3. REMERON [Concomitant]
     Active Substance: MIRTAZAPINE
     Indication: Depression
  4. CARBIDOPA\LEVODOPA [Concomitant]
     Active Substance: CARBIDOPA\LEVODOPA
     Indication: Parkinson^s disease
     Dosage: 10/25
  5. VITAMINS [Concomitant]
     Active Substance: VITAMINS
     Dosage: NOT PROVIDED
  6. MELATONIN [Concomitant]
     Active Substance: MELATONIN
     Indication: Sleep disorder
  7. ARICEPT [Concomitant]
     Active Substance: DONEPEZIL HYDROCHLORIDE
     Indication: Memory impairment
  8. XANAX [Concomitant]
     Active Substance: ALPRAZOLAM
     Indication: Anxiety
     Dosage: 0.5 MG
  9. VITAMIN D [Concomitant]
     Active Substance: VITAMIN D NOS
     Indication: Abnormal faeces
     Dosage: NOT PROVIDED
  10. COLACE [Concomitant]
     Active Substance: DOCUSATE SODIUM
     Indication: Diarrhoea
     Dosage: NOT PROVIDED
  11. BUSPAR [Concomitant]
     Active Substance: BUSPIRONE HYDROCHLORIDE
     Dosage: NOT PROVIDED

REACTIONS (2)
  - Injection site bruising [Recovered/Resolved]
  - Drug ineffective [Unknown]

NARRATIVE: CASE EVENT DATE: 20210101
